FAERS Safety Report 8815203 (Version 1)
Quarter: 2012Q4

REPORT INFORMATION
  Report Type: 
  Country: US (occurrence: US)
  Receive Date: 20120928
  Receipt Date: 20120928
  Transmission Date: 20130627
  Serious: No
  Sender: FDA-Public Use
  Company Number: US-PFIZER INC-2012236615

PATIENT
  Age: 24 Year
  Sex: Male

DRUGS (5)
  1. ZYVOX [Suspect]
     Indication: LOCALISED INFECTION
     Dosage: UNK
     Route: 048
     Dates: start: 20120921
  2. DEPAKOTE XR [Concomitant]
     Dosage: 2000 mg, 1x/day
  3. LITHOBID [Concomitant]
     Dosage: 900 mg, 2x/day
  4. SAPHRIS [Concomitant]
     Dosage: 10 mg, 2x/day
  5. KLONOPIN [Concomitant]
     Dosage: 1.5 mg, 2x/day

REACTIONS (4)
  - Anxiety [Not Recovered/Not Resolved]
  - Tachyphrenia [Not Recovered/Not Resolved]
  - Irritability [Not Recovered/Not Resolved]
  - Mania [Not Recovered/Not Resolved]
